FAERS Safety Report 21009880 (Version 10)
Quarter: 2023Q1

REPORT INFORMATION
  Report Type: Spontaneous
  Country: IN (occurrence: IN)
  Receive Date: 20220627
  Receipt Date: 20230131
  Transmission Date: 20230417
  Serious: Yes (Other)
  Sender: FDA-Public Use
  Company Number: IN-PFIZER INC-202200524364

PATIENT
  Age: 65 Year
  Sex: Female
  Weight: 67.9 kg

DRUGS (8)
  1. PALBOCICLIB [Suspect]
     Active Substance: PALBOCICLIB
     Indication: Breast cancer
     Dosage: 125 MG, 1X/DAY
     Route: 048
     Dates: start: 20220204
  2. PALBOCICLIB [Suspect]
     Active Substance: PALBOCICLIB
     Dosage: UNK
     Dates: end: 20220704
  3. PALBOCICLIB [Suspect]
     Active Substance: PALBOCICLIB
     Dosage: 100 MG, 1X/DAY
     Route: 048
     Dates: start: 202208
  4. ZOLEDRONIC ACID [Suspect]
     Active Substance: ZOLEDRONIC ACID
     Dosage: ZOLDONAT 4MG INJ (NATCO))(3.30MG), 1X/DAY
     Dates: start: 20221212
  5. FULVESTRANT [Concomitant]
     Active Substance: FULVESTRANT
     Dosage: 500 MG, CYCLIC (EVERY 28 DAYS)
     Dates: end: 202111
  6. ZOLEDRONIC ACID [Concomitant]
     Active Substance: ZOLEDRONIC ACID
     Dosage: UNK
  7. ZOLEDRONIC ACID [Concomitant]
     Active Substance: ZOLEDRONIC ACID
     Dosage: 4 MG, 1X/DAY
     Dates: start: 20220718
  8. ZOLEDRONIC ACID [Concomitant]
     Active Substance: ZOLEDRONIC ACID
     Dosage: 4 MG, FOR 1 DAYS
     Dates: start: 20221017

REACTIONS (22)
  - Leukopenia [Unknown]
  - Blood pressure increased [Unknown]
  - Haemoglobin decreased [Unknown]
  - Creatinine renal clearance decreased [Unknown]
  - Neutrophil count decreased [Unknown]
  - Dental discomfort [Unknown]
  - Red blood cell count decreased [Unknown]
  - Lymphocyte count increased [Unknown]
  - Pyrexia [Recovered/Resolved]
  - Basophil count decreased [Unknown]
  - Heart rate increased [Unknown]
  - COVID-19 [Unknown]
  - Platelet count decreased [Unknown]
  - Glomerular filtration rate decreased [Unknown]
  - Blood creatinine increased [Unknown]
  - Blood urea increased [Unknown]
  - Body mass index increased [Unknown]
  - Blood glucose increased [Unknown]
  - Neoplasm progression [Unknown]
  - Anaemia macrocytic [Unknown]
  - Hypochromic anaemia [Unknown]
  - Anisocytosis [Unknown]

NARRATIVE: CASE EVENT DATE: 20220301
